FAERS Safety Report 11895849 (Version 2)
Quarter: 2016Q1

REPORT INFORMATION
  Report Type: Report from Study
  Country: US (occurrence: US)
  Receive Date: 20160107
  Receipt Date: 20160111
  Transmission Date: 20160526
  Serious: Yes (Death, Other)
  Sender: FDA-Public Use
  Company Number: US-ASTRAZENECA-2016SE00242

PATIENT
  Sex: Male

DRUGS (2)
  1. FARXIGA [Suspect]
     Active Substance: DAPAGLIFLOZIN PROPANEDIOL
     Indication: TYPE 2 DIABETES MELLITUS
     Route: 048
  2. INSULIN [Concomitant]
     Active Substance: INSULIN NOS
     Dosage: THREE TIMES A DAY

REACTIONS (6)
  - Respiratory failure [Fatal]
  - Cardiac failure [Fatal]
  - Hypertension [Fatal]
  - Sepsis [Fatal]
  - Pancreatic carcinoma [Fatal]
  - Circumstance or information capable of leading to medication error [Unknown]
